FAERS Safety Report 26178463 (Version 1)
Quarter: 2025Q4

REPORT INFORMATION
  Report Type: Spontaneous
  Country: US (occurrence: US)
  Receive Date: 20251219
  Receipt Date: 20251219
  Transmission Date: 20260117
  Serious: No
  Sender: ELI LILLY AND COMPANY
  Company Number: US-ELI_LILLY_AND_COMPANY-US202512010191

PATIENT
  Age: 42 Year
  Sex: Female

DRUGS (2)
  1. ZEPBOUND [Suspect]
     Active Substance: TIRZEPATIDE
     Indication: Visual impairment
     Dosage: 2.5 MG, WEEKLY (1/W)
     Route: 065
     Dates: start: 20240102, end: 20251117
  2. ZEPBOUND [Suspect]
     Active Substance: TIRZEPATIDE
     Indication: Visual impairment
     Dosage: 2.5 MG, WEEKLY (1/W)
     Route: 065
     Dates: start: 20240102, end: 20251117

REACTIONS (2)
  - Vitreous floaters [Not Recovered/Not Resolved]
  - Off label use [Unknown]

NARRATIVE: CASE EVENT DATE: 20250903
